FAERS Safety Report 16700057 (Version 2)
Quarter: 2019Q3

REPORT INFORMATION
  Report Type: Spontaneous
  Country: US (occurrence: US)
  Receive Date: 20190813
  Receipt Date: 20190830
  Transmission Date: 20191004
  Serious: Yes (Hospitalization)
  Sender: FDA-Public Use
  Company Number: US-ASTRAZENECA-2019SF13532

PATIENT
  Age: 20854 Day
  Sex: Male

DRUGS (1)
  1. FASENRA [Suspect]
     Active Substance: BENRALIZUMAB
     Indication: ASTHMA
     Dosage: 30.0MG UNKNOWN
     Route: 058
     Dates: start: 20190723, end: 20190812

REACTIONS (6)
  - Arthralgia [Unknown]
  - Tremor [Unknown]
  - Tonic clonic movements [Recovered/Resolved]
  - Influenza like illness [Unknown]
  - Dyspnoea [Recovered/Resolved]
  - Fine motor skill dysfunction [Unknown]

NARRATIVE: CASE EVENT DATE: 20190730
